FAERS Safety Report 10026115 (Version 1)
Quarter: 2014Q1

REPORT INFORMATION
  Report Type: Spontaneous
  Country: NL (occurrence: NL)
  Receive Date: 20140320
  Receipt Date: 20140320
  Transmission Date: 20141002
  Serious: Yes (Hospitalization)
  Sender: FDA-Public Use
  Company Number: NL-TEVA-467422ISR

PATIENT
  Age: 89 Year
  Sex: Male
  Weight: 71 kg

DRUGS (2)
  1. METHOTREXAAT TABLET 2,5MG [Suspect]
     Indication: RHEUMATOID ARTHRITIS
     Dosage: ONCE A WEEK 6 PIECES
     Route: 048
     Dates: start: 20131226, end: 20140210
  2. NON SPECIFIED DRUG [Concomitant]
     Dosage: 1 DOSAGE FORMS DAILY; ONCE DAILY ONE PIECE
     Dates: start: 20060101

REACTIONS (5)
  - Oral disorder [Recovering/Resolving]
  - Pharyngeal disorder [Recovering/Resolving]
  - Diplopia [Recovering/Resolving]
  - Decreased appetite [Recovering/Resolving]
  - Delirium [Recovering/Resolving]
